FAERS Safety Report 4351590-9 (Version None)
Quarter: 2004Q2

REPORT INFORMATION
  Report Type: 
  Country: None (occurrence: None)
  Receive Date: 20040503
  Receipt Date: 20020516
  Transmission Date: 20050107
  Serious: Yes (Hospitalization, Disabling)
  Sender: FDA-Public Use
  Company Number: US-MERCK-0205USA02005

PATIENT
  Age: 54 Year
  Sex: Female
  Weight: 61 kg

DRUGS (6)
  1. PLENDIL [Concomitant]
     Route: 065
     Dates: start: 20000101
  2. DYAZIDE [Concomitant]
     Route: 065
     Dates: start: 20000101, end: 20030707
  3. VIOXX [Suspect]
     Indication: TENDONITIS
     Route: 048
     Dates: start: 20000911
  4. VIOXX [Suspect]
     Route: 048
     Dates: start: 20010101
  5. VIOXX [Suspect]
     Indication: ARTHRITIS
     Route: 048
     Dates: start: 20000911
  6. VIOXX [Suspect]
     Route: 048
     Dates: start: 20010101

REACTIONS (36)
  - ABDOMINAL DISTENSION [None]
  - ANXIETY [None]
  - ARTHRITIS [None]
  - ASTHENIA [None]
  - BLOOD CHOLESTEROL INCREASED [None]
  - BLOOD PRESSURE INCREASED [None]
  - CARPAL TUNNEL SYNDROME [None]
  - CEREBROVASCULAR ACCIDENT [None]
  - CERVICOBRACHIAL SYNDROME [None]
  - CLONIC CONVULSION [None]
  - CONSTIPATION [None]
  - DYSPEPSIA [None]
  - EMOTIONAL DISTRESS [None]
  - EPILEPSY [None]
  - FATIGUE [None]
  - HAEMATOCHEZIA [None]
  - HYPERLIPIDAEMIA [None]
  - HYPERSENSITIVITY [None]
  - HYPERTENSION [None]
  - HYPOAESTHESIA [None]
  - HYPOAESTHESIA ORAL [None]
  - IMPAIRED WORK ABILITY [None]
  - LABILE BLOOD PRESSURE [None]
  - MITRAL VALVE INCOMPETENCE [None]
  - MYALGIA [None]
  - NERVOUS SYSTEM DISORDER [None]
  - OSTEOPENIA [None]
  - PARAESTHESIA [None]
  - PEPTIC ULCER [None]
  - PULMONARY VALVE INCOMPETENCE [None]
  - ROTATOR CUFF SYNDROME [None]
  - SIMPLE PARTIAL SEIZURES [None]
  - TRICUSPID VALVE INCOMPETENCE [None]
  - URINE FLOW DECREASED [None]
  - VISION BLURRED [None]
  - WEIGHT INCREASED [None]
